FAERS Safety Report 23179426 (Version 1)
Quarter: 2023Q4

REPORT INFORMATION
  Report Type: Spontaneous
  Country: IS (occurrence: IS)
  Receive Date: 20231113
  Receipt Date: 20231113
  Transmission Date: 20240109
  Serious: Yes (Death)
  Sender: FDA-Public Use
  Company Number: None

PATIENT
  Age: 76 Year
  Sex: Female

DRUGS (26)
  1. JARDIANCE [Suspect]
     Active Substance: EMPAGLIFLOZIN
     Indication: Product used for unknown indication
     Dosage: 1 TABLET A DAY
  2. VAXIGRIPTETRA [Suspect]
     Active Substance: INFLUENZA VIRUS VACCINE QUADRIVALENT TYPE A+B
     Indication: Influenza immunisation
     Dates: start: 20231013
  3. IMOVANE [Concomitant]
     Active Substance: ZOPICLONE
     Indication: Product used for unknown indication
  4. Kaleorid 750 MG [Concomitant]
     Indication: Product used for unknown indication
     Dosage: 1 TABLET A DAY
  5. MAGNESIUM [Concomitant]
     Active Substance: MAGNESIUM
     Indication: Product used for unknown indication
     Dosage: 4 TABLETS A DAY
  6. Laxoberal 7,5 MG/ML [Concomitant]
     Indication: Product used for unknown indication
     Dosage: 10 DROPS IN THE EVENING
  7. Sobril 15 MG [Concomitant]
     Indication: Product used for unknown indication
     Dosage: 1 A DAY
  8. NOVORAPID 100 IU/ML [Concomitant]
     Indication: Product used for unknown indication
     Dosage: 100 IU/ML X 4
  9. Paratabs 500 MG [Concomitant]
     Indication: Product used for unknown indication
     Dosage: 6 TABLETS A DAY
  10. OXYCODONE [Concomitant]
     Active Substance: OXYCODONE
     Indication: Product used for unknown indication
     Dosage: 2 A DAY
  11. Furix 40MG [Concomitant]
     Indication: Product used for unknown indication
     Dosage: 1,5 TABLETS A DAY
  12. VALSARTAN 80 mg - TABLET [Concomitant]
     Indication: Product used for unknown indication
     Dosage: 0,5 TABLET A DAY
  13. Spiron 25 MG TABLETTER [Concomitant]
     Indication: Product used for unknown indication
     Dosage: 1 A DAY
  14. GABAPENTIN [Concomitant]
     Active Substance: GABAPENTIN
     Indication: Product used for unknown indication
     Dosage: 3 PER DAY
  15. IBANDRONIC ACID - SOLUTION FOR INFUSION [Concomitant]
     Indication: Product used for unknown indication
     Dosage: 1 INJECTION ON THE FIFTH DAY EACH MONTH
  16. ALLOPURINOL [Concomitant]
     Active Substance: ALLOPURINOL
     Indication: Product used for unknown indication
     Dosage: 1 A DAY
  17. METOPROLOL 95mg Tablet [Concomitant]
     Indication: Product used for unknown indication
     Dosage: 2 A DAY
  18. ELIQUIS [Concomitant]
     Active Substance: APIXABAN
     Indication: Product used for unknown indication
     Dosage: 2 TABLETS A DAY
  19. FLIXOTIDE 250 MCG [Concomitant]
     Indication: Product used for unknown indication
     Dosage: 2 TIMES A DAY
  20. TRESIBA [Concomitant]
     Active Substance: INSULIN DEGLUDEC
     Indication: Product used for unknown indication
     Dosage: 48 UNITS A DAY
  21. Esomeprazol 40 MG [Concomitant]
     Indication: Product used for unknown indication
     Dosage: 1 TABLET A DAY
  22. MOMETASON APOFRI [Concomitant]
     Indication: Product used for unknown indication
     Dosage: 1 A DAY
  23. TRELEGY ELLIPTA [Concomitant]
     Active Substance: FLUTICASONE FUROATE\UMECLIDINIUM BROMIDE\VILANTEROL TRIFENATATE
     Indication: Product used for unknown indication
     Dosage: 1 A DAY
  24. Levaxin 100 MIKROGRAM [Concomitant]
     Indication: Product used for unknown indication
     Dosage: 1 A DAY
  25. Promocard Durettes 30 MG [Concomitant]
     Indication: Product used for unknown indication
     Dosage: 2 A DAY
  26. LANOXIN TABLETS [Concomitant]
     Indication: Product used for unknown indication
     Dosage: 1 A DAY

REACTIONS (5)
  - Hyperhidrosis [Fatal]
  - Asthenia [Fatal]
  - Malaise [Fatal]
  - Cardiac arrest [Fatal]
  - Illness [Fatal]

NARRATIVE: CASE EVENT DATE: 20231020
